FAERS Safety Report 7720741-8 (Version None)
Quarter: 2011Q3

REPORT INFORMATION
  Report Type: 
  Country: None (occurrence: None)
  Receive Date: 20110830
  Receipt Date: 20110830
  Transmission Date: 20111222
  Serious: Yes (Life-Threatening, Other)
  Sender: FDA-Public Use
  Company Number: None

PATIENT
  Age: 54 Year
  Sex: Male
  Weight: 104.3273 kg

DRUGS (3)
  1. ACTOS [Suspect]
     Indication: BLOOD GLUCOSE INCREASED
     Dosage: 1-30 MG TAB AT NIGHT ORAL
     Route: 048
     Dates: start: 20110726
  2. ACTOS [Suspect]
     Indication: BLOOD GLUCOSE INCREASED
     Dosage: 1-30 MG TAB AT NIGHT ORAL
     Route: 048
     Dates: start: 20110727
  3. ACTOS [Suspect]
     Indication: BLOOD GLUCOSE INCREASED
     Dosage: 1-30 MG TAB AT NIGHT ORAL
     Route: 048
     Dates: start: 20110725

REACTIONS (4)
  - WEIGHT INCREASED [None]
  - DYSPNOEA [None]
  - OEDEMA PERIPHERAL [None]
  - CHEST PAIN [None]
